FAERS Safety Report 8495544-X (Version None)
Quarter: 2012Q3

REPORT INFORMATION
  Report Type: 
  Country: None (occurrence: None)
  Receive Date: 20120709
  Receipt Date: 20120629
  Transmission Date: 20120928
  Serious: Yes (Other)
  Sender: FDA-Public Use
  Company Number: US-ROCHE-1073519

PATIENT
  Sex: Male

DRUGS (1)
  1. ZELBORAF [Suspect]
     Indication: PRODUCT USED FOR UNKNOWN INDICATION

REACTIONS (11)
  - SQUAMOUS CELL CARCINOMA [None]
  - FATIGUE [None]
  - PRURITUS [None]
  - HEADACHE [None]
  - DIZZINESS [None]
  - MASS [None]
  - ARTHRALGIA [None]
  - ERYTHEMA [None]
  - DRY MOUTH [None]
  - DYSGEUSIA [None]
  - VISUAL IMPAIRMENT [None]
